FAERS Safety Report 11420670 (Version 1)
Quarter: 2015Q3

REPORT INFORMATION
  Report Type: Spontaneous
  Country: BR (occurrence: BR)
  Receive Date: 20150826
  Receipt Date: 20150826
  Transmission Date: 20151125
  Serious: Yes (Hospitalization, Other)
  Sender: FDA-Public Use
  Company Number: BR-PFIZER INC-2015277339

PATIENT
  Age: 74 Year
  Sex: Male
  Weight: 83 kg

DRUGS (3)
  1. ATORVASTATIN [Concomitant]
     Active Substance: ATORVASTATIN
     Indication: BLOOD CHOLESTEROL
     Dosage: 1 TABLET OF AN UNSPECIFIED DOSE, DAILY
     Dates: start: 2010
  2. LIPITOR [Suspect]
     Active Substance: ATORVASTATIN CALCIUM
     Indication: BLOOD CHOLESTEROL INCREASED
     Dosage: 1 TABLET OF 10 MG, DAILY
     Route: 048
     Dates: start: 2010
  3. DIOVAN [Concomitant]
     Active Substance: VALSARTAN
     Indication: BLOOD PRESSURE MEASUREMENT
     Dosage: 1 TABLET OF AN UNSPECIFIED DOSE, DAILY
     Dates: start: 2010

REACTIONS (4)
  - Chest pain [Unknown]
  - Infarction [Unknown]
  - Herpes zoster [Recovered/Resolved]
  - Arterial occlusive disease [Unknown]

NARRATIVE: CASE EVENT DATE: 20150712
